FAERS Safety Report 6746390-6 (Version None)
Quarter: 2010Q2

REPORT INFORMATION
  Report Type: 
  Country: None (occurrence: None)
  Receive Date: 20100528
  Receipt Date: 20100519
  Transmission Date: 20101027
  Serious: Yes (Hospitalization)
  Sender: FDA-Public Use
  Company Number: CA-ABBOTT-10P-028-0646152-00

PATIENT
  Age: 60 Year
  Sex: Female
  Weight: 82.628 kg

DRUGS (11)
  1. WARFARIN SODIUM [Suspect]
     Indication: CARDIAC VALVE DISEASE
     Dosage: DAILY; AS PER INR
     Route: 048
  2. WARFARIN SODIUM [Suspect]
     Indication: ATRIAL FIBRILLATION
  3. DALTEPARIN SODIUM/PLACEBO [Suspect]
     Indication: ANTICOAGULANT THERAPY
     Dates: start: 20091210, end: 20091218
  4. MIRAPEX [Concomitant]
     Indication: DRUG USE FOR UNKNOWN INDICATION
  5. PAXIL [Concomitant]
     Indication: DRUG USE FOR UNKNOWN INDICATION
  6. DIGOXIN [Concomitant]
     Indication: DRUG USE FOR UNKNOWN INDICATION
  7. DILTIAZEM HCL [Concomitant]
     Indication: DRUG USE FOR UNKNOWN INDICATION
  8. SOFLAX [Concomitant]
     Indication: DRUG USE FOR UNKNOWN INDICATION
  9. PANTOPRAZOLE SODIUM [Concomitant]
     Indication: DRUG USE FOR UNKNOWN INDICATION
  10. CAL MAG [Concomitant]
     Indication: DRUG USE FOR UNKNOWN INDICATION
  11. VITAMIN C [Concomitant]
     Indication: DRUG USE FOR UNKNOWN INDICATION

REACTIONS (2)
  - PNEUMONIA [None]
  - RESPIRATORY FAILURE [None]
